FAERS Safety Report 22005322 (Version 2)
Quarter: 2023Q1

REPORT INFORMATION
  Report Type: Spontaneous
  Country: KR (occurrence: KR)
  Receive Date: 20230217
  Receipt Date: 20230223
  Transmission Date: 20230417
  Serious: Yes (Hospitalization, Other)
  Sender: FDA-Public Use
  Company Number: KR-009507513-2302KOR005781

PATIENT
  Age: 50 Year
  Sex: Female
  Weight: 90.9 kg

DRUGS (13)
  1. PEMBROLIZUMAB [Suspect]
     Active Substance: PEMBROLIZUMAB
     Indication: Endometrial cancer stage II
     Dosage: 200 MILLIGRAM
     Route: 042
     Dates: start: 20210806, end: 20210827
  2. PEMBROLIZUMAB [Suspect]
     Active Substance: PEMBROLIZUMAB
     Dosage: 200 MILLIGRAM
     Route: 042
     Dates: start: 20210929, end: 20211201
  3. PEMBROLIZUMAB [Suspect]
     Active Substance: PEMBROLIZUMAB
     Dosage: 200 MILLIGRAM
     Route: 042
     Dates: start: 20211230, end: 20211230
  4. PEMBROLIZUMAB [Suspect]
     Active Substance: PEMBROLIZUMAB
     Dosage: 200 MILLIGRAM
     Route: 042
     Dates: start: 20220317, end: 20220317
  5. LENVATINIB MESYLATE [Suspect]
     Active Substance: LENVATINIB MESYLATE
     Indication: Endometrial cancer stage II
     Dosage: 20 MILLIGRAM DAILY
     Route: 048
     Dates: start: 20210806, end: 20210817
  6. LENVATINIB MESYLATE [Suspect]
     Active Substance: LENVATINIB MESYLATE
     Dosage: 14 MILLIGRAM DAILY
     Route: 048
     Dates: start: 20210818, end: 20210827
  7. LENVATINIB MESYLATE [Suspect]
     Active Substance: LENVATINIB MESYLATE
     Dosage: 10 MILLIGRAM DAILY
     Route: 048
     Dates: start: 20210929, end: 20220322
  8. CYMBALTA [Concomitant]
     Active Substance: DULOXETINE HYDROCHLORIDE
     Indication: Neuropathy peripheral
     Dosage: 60 MILLIGRAM, QD
     Route: 048
  9. ATROVAN [Concomitant]
     Indication: Hypertension
     Dosage: 10 MILLIGRAM, QD
     Route: 048
  10. LYRICA [Concomitant]
     Active Substance: PREGABALIN
     Dosage: 150 MILLIGRAM, QD
     Route: 048
  11. NEURONTIN [Concomitant]
     Active Substance: GABAPENTIN
     Indication: Neuropathy peripheral
     Dosage: 100 MILLIGRAM, QD
     Route: 048
  12. PROPIVERINE [Concomitant]
     Active Substance: PROPIVERINE
     Indication: Dysuria
     Dosage: UNK, TOTAL DAILY DOSE: 20 MG
     Route: 048
  13. ENTERON [LACTOBACILLUS PLANTARUM] [Concomitant]
     Indication: Lymphoedema
     Dosage: UNK, TOTAL DAILY DOSE: 300 MG
     Route: 048

REACTIONS (9)
  - Haematuria [Recovered/Resolved]
  - Proteinuria [Recovered/Resolved]
  - Hypertension [Recovered/Resolved]
  - Acute kidney injury [Recovered/Resolved]
  - Autoimmune disorder [Recovering/Resolving]
  - Hepatotoxicity [Recovered/Resolved]
  - Product use issue [Unknown]
  - Product use issue [Unknown]
  - Product use issue [Unknown]

NARRATIVE: CASE EVENT DATE: 20210812
